FAERS Safety Report 9479991 (Version 1)
Quarter: 2013Q3

REPORT INFORMATION
  Report Type: Spontaneous
  Country: US (occurrence: US)
  Receive Date: 20130828
  Receipt Date: 20130828
  Transmission Date: 20140515
  Serious: Yes (Death)
  Sender: FDA-Public Use
  Company Number: US-AMGEN-KDL055887

PATIENT
  Age: 40 Year
  Sex: Female

DRUGS (2)
  1. ENBREL [Suspect]
     Indication: RHEUMATOID ARTHRITIS
     Dosage: UNK UNK, 2 TIMES/WK
     Route: 058
     Dates: start: 199901
  2. PREDNISONE [Concomitant]

REACTIONS (8)
  - Death [Fatal]
  - Lower limb fracture [Unknown]
  - Musculoskeletal pain [Unknown]
  - Neck pain [Unknown]
  - Weight decreased [Unknown]
  - Knee operation [Unknown]
  - Post procedural infection [Unknown]
  - Staphylococcal infection [Unknown]
